FAERS Safety Report 20588808 (Version 1)
Quarter: 2022Q1

REPORT INFORMATION
  Report Type: Spontaneous
  Country: US (occurrence: None)
  Receive Date: 20220311
  Receipt Date: 20220311
  Transmission Date: 20220423
  Serious: Yes (Hospitalization)
  Sender: FDA-Public Use
  Company Number: None

PATIENT
  Sex: Female

DRUGS (1)
  1. BOTOX [Suspect]
     Active Substance: ONABOTULINUMTOXINA
     Indication: Migraine
     Dosage: OTHER QUANTITY : 100 UNITS;?FREQUENCY : AS DIRECTED;, EVERY 3 MONTHS?
     Dates: start: 20211207

REACTIONS (1)
  - Hospitalisation [None]
